FAERS Safety Report 7920143 (Version 11)
Quarter: 2016Q3

REPORT INFORMATION
  Report Type: Report from Study
  Country: CA (occurrence: CA)
  Receive Date: 20110429
  Receipt Date: 20160815
  Transmission Date: 20161109
  Serious: Yes (Hospitalization)
  Sender: FDA-Public Use
  Company Number: PHHY2009CA19261

PATIENT
  Age: 84 Year
  Sex: Female

DRUGS (9)
  1. NOVO-ATENOL [Concomitant]
     Indication: PRODUCT USED FOR UNKNOWN INDICATION
     Dosage: 0.5 DF, QD (50 MG 1/2 TAB ONCE DAILY)
     Route: 065
  2. CALCIUM [Concomitant]
     Active Substance: CALCIUM
     Indication: PRODUCT USED FOR UNKNOWN INDICATION
     Route: 065
  3. SANDOSTATIN LAR DEPOT [Suspect]
     Active Substance: OCTREOTIDE ACETATE
     Dosage: 40 MG, QMO (EVERY 4 WEEKS)
     Route: 030
     Dates: end: 20160712
  4. INDAPAMIDE. [Concomitant]
     Active Substance: INDAPAMIDE
     Indication: PRODUCT USED FOR UNKNOWN INDICATION
     Dosage: 1.25 MG, QD
     Route: 065
  5. NOVO-SIMVASTATIN [Concomitant]
     Active Substance: SIMVASTATIN
     Indication: PRODUCT USED FOR UNKNOWN INDICATION
     Dosage: 20 MG, QD
     Route: 065
  6. SANDOSTATIN LAR DEPOT [Suspect]
     Active Substance: OCTREOTIDE ACETATE
     Indication: PANCREATIC NEUROENDOCRINE TUMOUR
     Dosage: 40 MG, QMO
     Route: 030
     Dates: start: 20080721
  7. SANDOSTATIN LAR DEPOT [Suspect]
     Active Substance: OCTREOTIDE ACETATE
     Dosage: 30 MG, QMO
     Route: 030
  8. SANDOSTATIN [Suspect]
     Active Substance: OCTREOTIDE ACETATE
     Indication: PANCREATIC NEUROENDOCRINE TUMOUR
     Dosage: TEST DOSE
     Route: 058
     Dates: start: 20080715, end: 20080715
  9. SYNTHROID [Concomitant]
     Active Substance: LEVOTHYROXINE SODIUM
     Indication: PRODUCT USED FOR UNKNOWN INDICATION
     Dosage: UNK, QD
     Route: 065

REACTIONS (13)
  - Abdominal pain lower [Not Recovered/Not Resolved]
  - Oropharyngeal pain [Unknown]
  - Blood pressure systolic increased [Unknown]
  - Body temperature decreased [Unknown]
  - Abdominal distension [Unknown]
  - Fatigue [Unknown]
  - Hyperglycaemia [Unknown]
  - Injection site erythema [Unknown]
  - Diverticulitis [Unknown]
  - Scab [Unknown]
  - Constipation [Unknown]
  - Flatulence [Unknown]
  - Injection site ulcer [Unknown]

NARRATIVE: CASE EVENT DATE: 20151130
